FAERS Safety Report 5535646-0 (Version None)
Quarter: 2007Q4

REPORT INFORMATION
  Report Type: 
  Country: None (occurrence: None)
  Receive Date: 20071204
  Receipt Date: 20071204
  Transmission Date: 20080405
  Serious: Yes (Hospitalization)
  Sender: FDA-Public Use
  Company Number: None

PATIENT
  Sex: Male
  Weight: 67 kg

DRUGS (3)
  1. FLUOROURACIL [Suspect]
     Dosage: 2744 MG
  2. CISPLATIN [Suspect]
     Dosage: 118 MG
  3. ELLENCE [Suspect]
     Dosage: 98 MG

REACTIONS (1)
  - NEUTROPENIA [None]
